FAERS Safety Report 6843949-2 (Version None)
Quarter: 2010Q3

REPORT INFORMATION
  Report Type: 
  Country: None (occurrence: None)
  Receive Date: 20100715
  Receipt Date: 20100708
  Transmission Date: 20110219
  Serious: Yes (Congenital Anomaly, Other)
  Sender: FDA-Public Use
  Company Number: US-PFIZER INC-2010083901

PATIENT

DRUGS (4)
  1. VIRACEPT [Suspect]
     Indication: HIV INFECTION
     Dosage: UNK
     Route: 064
  2. EPIVIR [Suspect]
     Indication: HIV INFECTION
     Dosage: UNK
     Route: 064
  3. ZIAGEN [Suspect]
     Indication: HIV INFECTION
     Dosage: UNK
     Route: 064
  4. SUSTIVA [Suspect]
     Indication: HIV INFECTION
     Dosage: UNK
     Route: 064

REACTIONS (2)
  - DRUG EXPOSURE DURING PREGNANCY [None]
  - POLYDACTYLY [None]
